FAERS Safety Report 23387330 (Version 2)
Quarter: 2024Q1

REPORT INFORMATION
  Report Type: Spontaneous
  Country: US (occurrence: US)
  Receive Date: 20240110
  Receipt Date: 20240229
  Transmission Date: 20240410
  Serious: Yes (Death, Hospitalization)
  Sender: FDA-Public Use
  Company Number: US-BAYER-2024A002317

PATIENT
  Age: 22 Year
  Sex: Male

DRUGS (2)
  1. ASPIRIN [Suspect]
     Active Substance: ASPIRIN
     Route: 048
  2. SODIUM NITRITE [Suspect]
     Active Substance: SODIUM NITRITE

REACTIONS (1)
  - Toxicity to various agents [Fatal]
